FAERS Safety Report 17444330 (Version 1)
Quarter: 2020Q1

REPORT INFORMATION
  Report Type: Spontaneous
  Country: US (occurrence: US)
  Receive Date: 20200207
  Receipt Date: 20200207
  Transmission Date: 20200409
  Serious: No
  Sender: FDA-Public Use
  Company Number: None

PATIENT
  Age: 50 Year
  Sex: Female

DRUGS (1)
  1. EPIDIOLEX [Suspect]
     Active Substance: CANNABIDIOL
     Dosage: ?          OTHER DOSE:9ML (900MG);?
     Route: 048
     Dates: start: 20190308

REACTIONS (1)
  - Death [None]

NARRATIVE: CASE EVENT DATE: 20200205
